FAERS Safety Report 16490502 (Version 2)
Quarter: 2019Q3

REPORT INFORMATION
  Report Type: Spontaneous
  Country: US (occurrence: US)
  Receive Date: 20190628
  Receipt Date: 20190702
  Transmission Date: 20191004
  Serious: No
  Sender: FDA-Public Use
  Company Number: PHEH2019US026877

PATIENT
  Sex: Female
  Weight: 9.98 kg

DRUGS (1)
  1. CIPRODEX [Suspect]
     Active Substance: CIPROFLOXACIN HYDROCHLORIDE\DEXAMETHASONE
     Indication: POSTOPERATIVE CARE
     Dosage: UNK UNK, BID
     Route: 050
     Dates: start: 20190619, end: 20190620

REACTIONS (1)
  - Rash [Recovered/Resolved]
